FAERS Safety Report 7658292-1 (Version None)
Quarter: 2011Q3

REPORT INFORMATION
  Report Type: 
  Country: None (occurrence: None)
  Receive Date: 20110805
  Receipt Date: 20110802
  Transmission Date: 20111222
  Serious: No
  Sender: FDA-Public Use
  Company Number: US-PFIZER INC-2011161032

PATIENT
  Sex: Female
  Weight: 74.4 kg

DRUGS (6)
  1. PRISTIQ [Suspect]
     Indication: DEPRESSION
     Dosage: 50 MG (FREQUENCY UNKNOWN)
     Route: 048
     Dates: end: 20110710
  2. PRISTIQ [Suspect]
     Dosage: 100MG (FREQUENCY UNKNOWN)
     Route: 048
     Dates: start: 20110711
  3. SYNTHROID [Concomitant]
     Indication: THYROID DISORDER
     Dosage: 125 UG, DAILY
     Dates: start: 19910101
  4. PREMARIN [Concomitant]
     Dosage: 0.03 MG, DAILY
     Dates: start: 19930101
  5. PRILOSEC [Concomitant]
     Dosage: UNK
  6. VYTORIN [Concomitant]
     Indication: BLOOD CHOLESTEROL INCREASED
     Dosage: 10/20MG EVERY HOUR

REACTIONS (1)
  - FATIGUE [None]
